FAERS Safety Report 4896119-1 (Version None)
Quarter: 2005Q4

REPORT INFORMATION
  Report Type: 
  Country: None (occurrence: None)
  Receive Date: 20051220
  Receipt Date: 20050808
  Transmission Date: 20060501
  Serious: Yes (Other)
  Sender: FDA-Public Use
  Company Number: US144058

PATIENT
  Age: 51 Year
  Sex: Male

DRUGS (5)
  1. ENBREL [Suspect]
     Indication: PUSTULAR PSORIASIS
     Dosage: 50 MG, 2 IN 1 WEEKS
     Dates: start: 20050330, end: 20050726
  2. INTERFERON [Suspect]
     Indication: HEPATITIS C
     Dates: start: 20050113
  3. PEGINTERERON ALFA-2A [Suspect]
     Indication: HEPATITIS C
     Dates: start: 20050301
  4. CYCLOSPORINE [Concomitant]
  5. RIBAVIRIN [Concomitant]

REACTIONS (3)
  - CONDITION AGGRAVATED [None]
  - PLATELET COUNT DECREASED [None]
  - WHITE BLOOD CELL COUNT DECREASED [None]
